FAERS Safety Report 13662630 (Version 1)
Quarter: 2017Q2

REPORT INFORMATION
  Report Type: Spontaneous
  Country: US (occurrence: US)
  Receive Date: 20170616
  Receipt Date: 20170616
  Transmission Date: 20170830
  Serious: Yes (Death)
  Sender: FDA-Public Use
  Company Number: None

PATIENT
  Age: 71 Year
  Sex: Male
  Weight: 100.52 kg

DRUGS (2)
  1. IODIXANOL. [Suspect]
     Active Substance: IODIXANOL
     Indication: IMAGING PROCEDURE
     Dosage: 100 ML ONCE IV
     Route: 042
     Dates: start: 20170501, end: 20170501
  2. IODIXANOL. [Suspect]
     Active Substance: IODIXANOL
     Indication: INTERSTITIAL LUNG DISEASE
     Dosage: 100 ML ONCE IV
     Route: 042
     Dates: start: 20170501, end: 20170501

REACTIONS (10)
  - Respiratory failure [None]
  - Pyrexia [None]
  - Liver function test abnormal [None]
  - Hypotension [None]
  - Ventricular tachycardia [None]
  - Documented hypersensitivity to administered product [None]
  - International normalised ratio abnormal [None]
  - Contrast media reaction [None]
  - Acute myocardial infarction [None]
  - Renal impairment [None]

NARRATIVE: CASE EVENT DATE: 20170501
